FAERS Safety Report 18199931 (Version 1)
Quarter: 2020Q3

REPORT INFORMATION
  Report Type: Spontaneous
  Country: ES (occurrence: ES)
  Receive Date: 20200827
  Receipt Date: 20200827
  Transmission Date: 20201103
  Serious: Yes (Hospitalization)
  Sender: FDA-Public Use
  Company Number: ES-SCIEGEN-2020SCILIT00248

PATIENT
  Age: 55 Year
  Sex: Male
  Weight: 70 kg

DRUGS (3)
  1. HYDROCHLOROTHIAZIDE TABLETS [Suspect]
     Active Substance: HYDROCHLOROTHIAZIDE
     Indication: HYPERTENSION
     Route: 065
  2. ENALAPRIL [Concomitant]
     Active Substance: ENALAPRIL
     Indication: HYPERTENSION
     Route: 065
  3. ALTEPLASE. [Interacting]
     Active Substance: ALTEPLASE
     Indication: APHASIA
     Dosage: ADJUSTED FOR A WEIGHT OF 70 KG
     Route: 065

REACTIONS (2)
  - Aphasia [Unknown]
  - Language disorder [Unknown]
